FAERS Safety Report 16327647 (Version 1)
Quarter: 2019Q2

REPORT INFORMATION
  Report Type: Spontaneous
  Country: US (occurrence: US)
  Receive Date: 20190517
  Receipt Date: 20190517
  Transmission Date: 20190711
  Serious: No
  Sender: FDA-Public Use
  Company Number: US-VIFOR (INTERNATIONAL) INC.-VIT-2019-04018

PATIENT
  Sex: Male

DRUGS (4)
  1. VELTASSA [Suspect]
     Active Substance: PATIROMER
     Indication: BLOOD POTASSIUM INCREASED
  2. VELTASSA [Suspect]
     Active Substance: PATIROMER
  3. RAMIPRIL. [Concomitant]
     Active Substance: RAMIPRIL
  4. EPLERENONE. [Concomitant]
     Active Substance: EPLERENONE

REACTIONS (4)
  - Constipation [Recovered/Resolved]
  - Flatulence [Recovered/Resolved]
  - Discomfort [Recovered/Resolved]
  - Abdominal distension [Recovered/Resolved]
